FAERS Safety Report 13526587 (Version 1)
Quarter: 2017Q2

REPORT INFORMATION
  Report Type: Spontaneous
  Country: GB (occurrence: GB)
  Receive Date: 20170509
  Receipt Date: 20170509
  Transmission Date: 20170830
  Serious: Yes (Other)
  Sender: FDA-Public Use
  Company Number: GB-DRREDDYS-GER/UKI/17/0090451

PATIENT
  Age: 54 Year
  Sex: Female

DRUGS (2)
  1. SUMATRIPTAN 50MG FILM-COATED TABLETS, DR. REDDY^S [Suspect]
     Active Substance: SUMATRIPTAN
     Indication: MIGRAINE
     Route: 048
     Dates: start: 201703
  2. THYROXINE [Concomitant]
     Active Substance: LEVOTHYROXINE
     Indication: PRODUCT USED FOR UNKNOWN INDICATION

REACTIONS (9)
  - Vascular pain [Unknown]
  - Drug effect delayed [Unknown]
  - Connective tissue disorder [Unknown]
  - Vein disorder [Unknown]
  - Eyelid ptosis [Unknown]
  - Vein discolouration [Unknown]
  - Extraocular muscle paresis [Unknown]
  - Heart rate decreased [Unknown]
  - Cyanosis [Unknown]

NARRATIVE: CASE EVENT DATE: 201703
